FAERS Safety Report 11803479 (Version 1)
Quarter: 2015Q4

REPORT INFORMATION
  Report Type: Spontaneous
  Country: CA (occurrence: CA)
  Receive Date: 20151204
  Receipt Date: 20151204
  Transmission Date: 20160305
  Serious: Yes (Other)
  Sender: FDA-Public Use
  Company Number: CA-TEVA-613890ACC

PATIENT
  Age: 9 Year
  Sex: Male
  Weight: 35 kg

DRUGS (4)
  1. ACETAMINOPHEN. [Concomitant]
     Active Substance: ACETAMINOPHEN
  2. IBUPROFEN. [Concomitant]
     Active Substance: IBUPROFEN
  3. GABAPENTIN. [Suspect]
     Active Substance: GABAPENTIN
     Indication: HEADACHE
     Dosage: 100 MILLIGRAM DAILY;
     Route: 048
  4. MELATONIN [Concomitant]
     Active Substance: MELATONIN

REACTIONS (6)
  - Inappropriate affect [Not Recovered/Not Resolved]
  - Restlessness [Not Recovered/Not Resolved]
  - Aggression [Not Recovered/Not Resolved]
  - Confusional state [Not Recovered/Not Resolved]
  - Crying [Not Recovered/Not Resolved]
  - Abnormal behaviour [Not Recovered/Not Resolved]
